FAERS Safety Report 9761974 (Version 2)
Quarter: 2014Q2

REPORT INFORMATION
  Report Type: Spontaneous
  Country: US (occurrence: US)
  Receive Date: 20131216
  Receipt Date: 20140421
  Transmission Date: 20141212
  Serious: No
  Sender: FDA-Public Use
  Company Number: US-BIOGENIDEC-2013BI108717

PATIENT
  Age: 36 Year
  Sex: Female

DRUGS (10)
  1. TECFIDERA [Suspect]
     Indication: RELAPSING-REMITTING MULTIPLE SCLEROSIS
     Dates: start: 201310, end: 201311
  2. TECFIDERA [Suspect]
     Indication: RELAPSING-REMITTING MULTIPLE SCLEROSIS
     Dates: start: 20131014, end: 20131101
  3. GABAPENTIN [Concomitant]
  4. CVS DIGESTIVE PROBIOTIC [Concomitant]
  5. FIBER CHOICE [Concomitant]
  6. EXCEDRIN MIGRAINE [Concomitant]
  7. CLARITIN [Concomitant]
  8. SALMON OIL [Concomitant]
  9. DAILY MULTIVITAMIN - IRON [Concomitant]
  10. NORDETTE-28 [Concomitant]

REACTIONS (4)
  - Gastric disorder [Recovered/Resolved]
  - Abdominal distension [Recovered/Resolved]
  - Flushing [Recovered/Resolved]
  - Abdominal pain upper [Recovered/Resolved]
